FAERS Safety Report 8275629-3 (Version None)
Quarter: 2012Q2

REPORT INFORMATION
  Report Type: 
  Country: None (occurrence: None)
  Receive Date: 20120412
  Receipt Date: 20120402
  Transmission Date: 20120825
  Serious: No
  Sender: FDA-Public Use
  Company Number: US-BIOGENIDEC-2012BI010586

PATIENT
  Age: 48 Year
  Sex: Female

DRUGS (1)
  1. TYSABRI [Suspect]
     Indication: MULTIPLE SCLEROSIS
     Route: 042
     Dates: start: 20061101

REACTIONS (13)
  - FEELING HOT [None]
  - MEMORY IMPAIRMENT [None]
  - BACK PAIN [None]
  - MUSCLE SPASMS [None]
  - DEHYDRATION [None]
  - INSOMNIA [None]
  - HYPOPHAGIA [None]
  - DIARRHOEA [None]
  - COORDINATION ABNORMAL [None]
  - CONTUSION [None]
  - FEELING COLD [None]
  - FATIGUE [None]
  - MENTAL IMPAIRMENT [None]
